FAERS Safety Report 21551684 (Version 2)
Quarter: 2022Q4

REPORT INFORMATION
  Report Type: Spontaneous
  Country: JP (occurrence: JP)
  Receive Date: 20221103
  Receipt Date: 20221208
  Transmission Date: 20230112
  Serious: Yes (Hospitalization, Other)
  Sender: FDA-Public Use
  Company Number: JP-BAYER-2022A020437

PATIENT
  Age: 85 Year
  Sex: Male
  Weight: 74 kg

DRUGS (13)
  1. XARELTO [Suspect]
     Active Substance: RIVAROXABAN
     Indication: Atrial fibrillation
     Dosage: 10 MG, QD
     Route: 048
     Dates: end: 20210506
  2. LANSOPRAZOLE [Concomitant]
     Active Substance: LANSOPRAZOLE
     Dosage: DAILY DOSE 1 DF, MORNING
  3. AMLODIPINE [Concomitant]
     Active Substance: AMLODIPINE BESYLATE
     Dosage: DAILY DOSE 1 DF, MORNING
  4. AMLODIPINE [Concomitant]
     Active Substance: AMLODIPINE BESYLATE
     Dosage: DAILY DOSE 1 DF, MORNING
  5. EDOXABAN TOSYLATE [Concomitant]
     Active Substance: EDOXABAN TOSYLATE
     Dosage: DAILY DOSE 1 DF, MORNING
  6. NEXIUM [Concomitant]
     Active Substance: ESOMEPRAZOLE MAGNESIUM
     Dosage: DAILY DOSE 2 DF, MORNING
  7. LEVOFLOXACIN [Concomitant]
     Active Substance: LEVOFLOXACIN
     Dosage: DAILY DOSE 1 DF, MORNING
  8. BENZBROMARONE [Concomitant]
     Active Substance: BENZBROMARONE
     Dosage: DAILY DOSE 1 DF, MORNING
  9. TOCOPHERYL NICOTINATE [Concomitant]
     Active Substance: TOCOPHERYL NICOTINATE, D-.ALPHA.
     Dosage: DAILY DOSE 1 DF, MORNING
  10. TELMISARTAN [Concomitant]
     Active Substance: TELMISARTAN
     Dosage: DAILY DOSE 1 DF, MORNING
  11. VONOPRAZAN FUMARATE [Concomitant]
     Active Substance: VONOPRAZAN FUMARATE
     Dosage: DAILY DOSE 1 DF, BEFORE SLEEP
  12. AMITRIPTYLINE HYDROCHLORIDE [Concomitant]
     Active Substance: AMITRIPTYLINE HYDROCHLORIDE
     Dosage: DAILY DOSE 1 DF, BEFORE SLEEP
  13. BROTIZOLAM [Concomitant]
     Active Substance: BROTIZOLAM
     Dosage: DAILY DOSE 1 DF, BEFORE SLEEP

REACTIONS (6)
  - Loss of consciousness [Unknown]
  - Fall [Unknown]
  - Hemiplegia [Unknown]
  - Neurologic neglect syndrome [Unknown]
  - Eye movement disorder [Unknown]
  - Dyslalia [Unknown]

NARRATIVE: CASE EVENT DATE: 20210506
